FAERS Safety Report 15836794 (Version 1)
Quarter: 2019Q1

REPORT INFORMATION
  Report Type: Spontaneous
  Country: DE (occurrence: DE)
  Receive Date: 20190117
  Receipt Date: 20190117
  Transmission Date: 20190417
  Serious: Yes (Other)
  Sender: FDA-Public Use
  Company Number: DE-TEVA-2019-DE-996661

PATIENT
  Sex: Female
  Weight: 28 kg

DRUGS (3)
  1. PANTOPRAZOL 20MG [Concomitant]
     Dosage: 20 MILLIGRAM DAILY;
  2. GABAPENTIN-RATIOPHARM 300 MG HARTKAPSELN [Suspect]
     Active Substance: GABAPENTIN
     Indication: TRIGEMINAL NEURALGIA
     Dosage: 3-4 TIMES DAILY FOR 2,5 MONTHS
     Route: 048
     Dates: start: 201807, end: 201809
  3. MOVICOL [Concomitant]
     Active Substance: POLYETHYLENE GLYCOL 3350\POTASSIUM CHLORIDE\SODIUM BICARBONATE\SODIUM CHLORIDE
     Indication: STOMA CREATION

REACTIONS (8)
  - Ocular icterus [Recovering/Resolving]
  - Eye haemorrhage [Recovering/Resolving]
  - Skin atrophy [Recovering/Resolving]
  - Contusion [Recovering/Resolving]
  - Haematochezia [Recovered/Resolved]
  - Hepatic enzyme increased [Recovering/Resolving]
  - Hepatic pain [Recovering/Resolving]
  - Overdose [Unknown]

NARRATIVE: CASE EVENT DATE: 2018
